FAERS Safety Report 7579260-4 (Version None)
Quarter: 2011Q2

REPORT INFORMATION
  Report Type: 
  Country: None (occurrence: None)
  Receive Date: 20110628
  Receipt Date: 20110616
  Transmission Date: 20111010
  Serious: Yes (Other)
  Sender: FDA-Public Use
  Company Number: TW-MERCK-1106USA02223

PATIENT
  Age: 76 Year
  Sex: Female
  Weight: 60 kg

DRUGS (1)
  1. FOSAMAX PLUS D [Suspect]
     Indication: OSTEOPOROSIS
     Route: 048
     Dates: start: 20091014, end: 20110318

REACTIONS (2)
  - GINGIVITIS [None]
  - OSTEONECROSIS [None]
